FAERS Safety Report 9435206 (Version 2)
Quarter: 2014Q1

REPORT INFORMATION
  Report Type: Spontaneous
  Country: GB (occurrence: None)
  Receive Date: 20130730
  Receipt Date: 20140325
  Transmission Date: 20141002
  Serious: Yes (Disabling)
  Sender: FDA-Public Use
  Company Number: FK201302742

PATIENT
  Age: 12 Year
  Sex: Female
  Weight: 71.4 kg

DRUGS (2)
  1. METHOTREXATE [Suspect]
     Indication: JUVENILE IDIOPATHIC ARTHRITIS
     Route: 048
     Dates: start: 20111114
  2. PREDNISOLONE (PREDNISOLONE) [Concomitant]

REACTIONS (5)
  - Migraine [None]
  - Cyst [None]
  - Sinus polyp [None]
  - Headache [None]
  - Epistaxis [None]
